FAERS Safety Report 14536638 (Version 1)
Quarter: 2018Q1

REPORT INFORMATION
  Report Type: Spontaneous
  Country: US (occurrence: US)
  Receive Date: 20180215
  Receipt Date: 20180215
  Transmission Date: 20180509
  Serious: Yes (Other)
  Sender: FDA-Public Use
  Company Number: US-BAYER-2018-028387

PATIENT
  Age: 43 Year
  Sex: Female

DRUGS (2)
  1. MIRENA [Suspect]
     Active Substance: LEVONORGESTREL
     Dosage: 20 MCG/24HR, CONT
     Route: 015
     Dates: start: 20120514, end: 20160216
  2. MIRENA [Suspect]
     Active Substance: LEVONORGESTREL

REACTIONS (4)
  - Uterine perforation [None]
  - Back pain [Not Recovered/Not Resolved]
  - Device issue [None]
  - Arthralgia [Not Recovered/Not Resolved]
